FAERS Safety Report 21565074 (Version 2)
Quarter: 2022Q4

REPORT INFORMATION
  Report Type: Report from Study
  Country: US (occurrence: US)
  Receive Date: 20221108
  Receipt Date: 20221116
  Transmission Date: 20230113
  Serious: No
  Sender: FDA-Public Use
  Company Number: US-002147023-NVSC2022US243661

PATIENT
  Age: 21 Year
  Sex: Male

DRUGS (2)
  1. KESIMPTA [Suspect]
     Active Substance: OFATUMUMAB
     Indication: Multiple sclerosis
     Dosage: 20 MG, QMO (FIRST DOSE)
     Route: 058
     Dates: start: 20221019
  2. KESIMPTA [Suspect]
     Active Substance: OFATUMUMAB
     Dosage: 20 MG (SECOND DOSE)
     Route: 058

REACTIONS (7)
  - Pain [Recovered/Resolved]
  - Pain [Recovering/Resolving]
  - Pyrexia [Recovered/Resolved]
  - Pyrexia [Recovering/Resolving]
  - Chills [Recovered/Resolved]
  - Chills [Recovering/Resolving]
  - Influenza like illness [Recovered/Resolved]

NARRATIVE: CASE EVENT DATE: 20221019
